FAERS Safety Report 5789289-4 (Version None)
Quarter: 2008Q2

REPORT INFORMATION
  Report Type: 
  Country: None (occurrence: None)
  Receive Date: 20080625
  Receipt Date: 20080625
  Transmission Date: 20081010
  Serious: Yes (Other)
  Sender: FDA-Public Use
  Company Number: None

PATIENT
  Age: 35 Year
  Sex: Female
  Weight: 59.8748 kg

DRUGS (1)
  1. MIRENA [Suspect]
     Indication: CONTRACEPTION
     Dates: start: 20041013, end: 20080617

REACTIONS (5)
  - ACNE [None]
  - AMENORRHOEA [None]
  - BLEEDING ANOVULATORY [None]
  - CONDITION AGGRAVATED [None]
  - HEMICEPHALALGIA [None]
